FAERS Safety Report 19066824 (Version 1)
Quarter: 2021Q1

REPORT INFORMATION
  Report Type: Spontaneous
  Country: FR (occurrence: FR)
  Receive Date: 20210329
  Receipt Date: 20210329
  Transmission Date: 20210420
  Serious: Yes (Hospitalization, Other)
  Sender: FDA-Public Use
  Company Number: FR-SA-2021SA099145

PATIENT
  Age: 70 Year
  Sex: Male

DRUGS (2)
  1. OXALIPLATINE WINTHROP [Suspect]
     Active Substance: OXALIPLATIN
     Indication: ADENOCARCINOMA OF COLON
     Dosage: 120 MG, QCY
     Route: 042
     Dates: start: 20210223, end: 20210223
  2. ONDANSETRON [Suspect]
     Active Substance: ONDANSETRON
     Indication: PROPHYLAXIS OF NAUSEA AND VOMITING
     Dosage: 8 MG, QCY
     Route: 042
     Dates: start: 20210223, end: 20210223

REACTIONS (3)
  - Purpura [Recovering/Resolving]
  - Anaphylactic shock [Recovered/Resolved]
  - Thrombocytopenia [Recovered/Resolved]

NARRATIVE: CASE EVENT DATE: 20210223
